FAERS Safety Report 9993186 (Version 1)
Quarter: 2014Q1

REPORT INFORMATION
  Report Type: Spontaneous
  Country: FR (occurrence: FR)
  Receive Date: 20140310
  Receipt Date: 20140310
  Transmission Date: 20141002
  Serious: Yes (Life-Threatening)
  Sender: FDA-Public Use
  Company Number: FR-SA-2014SA025588

PATIENT
  Age: 74 Year
  Sex: Male

DRUGS (6)
  1. LASILIX [Suspect]
     Indication: CARDIAC FAILURE
     Route: 065
     Dates: start: 20131025, end: 20131102
  2. VELMETIA [Suspect]
     Indication: TYPE 2 DIABETES MELLITUS
     Route: 065
     Dates: end: 20131102
  3. PREVISCAN [Concomitant]
  4. AMAREL [Concomitant]
  5. CRESTOR [Concomitant]
  6. PROPANOLOL [Concomitant]

REACTIONS (7)
  - Metabolic acidosis [Recovered/Resolved]
  - Cardio-respiratory arrest [Recovered/Resolved]
  - Malaise [Recovered/Resolved]
  - Loss of consciousness [Recovered/Resolved]
  - Hypotension [Recovered/Resolved]
  - Bradycardia [Recovered/Resolved]
  - Renal failure acute [Recovered/Resolved]
